FAERS Safety Report 15704544 (Version 2)
Quarter: 2020Q1

REPORT INFORMATION
  Report Type: Spontaneous
  Country: US (occurrence: US)
  Receive Date: 20181210
  Receipt Date: 20200108
  Transmission Date: 20200409
  Serious: No
  Sender: FDA-Public Use
  Company Number: US-PFIZER INC-2018506508

PATIENT
  Age: 35 Year
  Sex: Male
  Weight: 78.2 kg

DRUGS (1)
  1. ALDACTONE [Suspect]
     Active Substance: SPIRONOLACTONE
     Dosage: UNK

REACTIONS (3)
  - Breast tenderness [Unknown]
  - Gynaecomastia [Unknown]
  - Abdominal distension [Unknown]
